FAERS Safety Report 5611654-6 (Version None)
Quarter: 2008Q1

REPORT INFORMATION
  Report Type: 
  Country: None (occurrence: None)
  Receive Date: 20080201
  Receipt Date: 20080121
  Transmission Date: 20080703
  Serious: Yes (Hospitalization)
  Sender: FDA-Public Use
  Company Number: GB-PFIZER INC-2006148873

PATIENT
  Sex: Male
  Weight: 77.8 kg

DRUGS (8)
  1. SU-011,248 [Suspect]
     Indication: RENAL CELL CARCINOMA
     Route: 048
  2. LANSOPRAZOLE [Concomitant]
     Route: 048
  3. FLUCLOXACILLIN [Concomitant]
     Route: 048
     Dates: start: 20061101, end: 20061130
  4. MEDROXYPROGESTERONE [Concomitant]
     Route: 048
  5. AMLODIPINE [Concomitant]
     Route: 048
     Dates: start: 20061018, end: 20061212
  6. LOPERAMIDE HCL [Concomitant]
  7. ORAMORPH SR [Concomitant]
  8. MOVICOL [Concomitant]

REACTIONS (2)
  - HAEMOPTYSIS [None]
  - LOWER RESPIRATORY TRACT INFECTION [None]
